FAERS Safety Report 13573177 (Version 1)
Quarter: 2017Q2

REPORT INFORMATION
  Report Type: Spontaneous
  Country: US (occurrence: US)
  Receive Date: 20170523
  Receipt Date: 20170523
  Transmission Date: 20170830
  Serious: No
  Sender: FDA-Public Use
  Company Number: US-LEO PHARMA-302998

PATIENT
  Age: 71 Year
  Sex: Female

DRUGS (1)
  1. PICATO [Suspect]
     Active Substance: INGENOL MEBUTATE
     Indication: PRECANCEROUS SKIN LESION
     Dosage: HAD ONLY ONE DOSE
     Route: 061
     Dates: start: 20170516, end: 20170516

REACTIONS (6)
  - Application site exfoliation [Not Recovered/Not Resolved]
  - Application site swelling [Not Recovered/Not Resolved]
  - Eye swelling [Not Recovered/Not Resolved]
  - Application site pain [Recovered/Resolved]
  - Incorrect drug administration duration [Unknown]
  - Application site erythema [Not Recovered/Not Resolved]

NARRATIVE: CASE EVENT DATE: 20170517
